FAERS Safety Report 22082720 (Version 2)
Quarter: 2023Q1

REPORT INFORMATION
  Report Type: Spontaneous
  Country: BR (occurrence: BR)
  Receive Date: 20230310
  Receipt Date: 20230316
  Transmission Date: 20230417
  Serious: Yes (Hospitalization, Other)
  Sender: FDA-Public Use
  Company Number: BR-002147023-NVSC2023BR052779

PATIENT
  Age: 23 Year
  Sex: Female
  Weight: 50 kg

DRUGS (2)
  1. ADAKVEO [Suspect]
     Active Substance: CRIZANLIZUMAB-TMCA
     Indication: Sickle cell anaemia
     Dosage: UNK
     Route: 065
  2. ADAKVEO [Suspect]
     Active Substance: CRIZANLIZUMAB-TMCA
     Dosage: 250 MG (FLASK AMPOULE)
     Route: 042
     Dates: start: 20230130

REACTIONS (4)
  - Memory impairment [Unknown]
  - Confusional state [Unknown]
  - Amnesia [Unknown]
  - Arterial flow velocity increased [Unknown]

NARRATIVE: CASE EVENT DATE: 20230212
